FAERS Safety Report 4343316-X (Version None)
Quarter: 2004Q1

REPORT INFORMATION
  Report Type: 
  Country: None (occurrence: None)
  Receive Date: 20040325
  Receipt Date: 20040122
  Transmission Date: 20041129
  Serious: No
  Sender: FDA-Public Use
  Company Number: USA040157387

PATIENT
  Age: 71 Year
  Sex: Female

DRUGS (5)
  1. FORTEO [Suspect]
     Indication: OSTEOPOROSIS
     Dates: start: 20030910
  2. COZAAR [Concomitant]
  3. ZOCOR [Concomitant]
  4. ACIPHEX [Concomitant]
  5. HYOSCYAMINE [Concomitant]

REACTIONS (1)
  - PAIN [None]
